FAERS Safety Report 5481195-8 (Version None)
Quarter: 2007Q4

REPORT INFORMATION
  Report Type: 
  Country: None (occurrence: None)
  Receive Date: 20071010
  Receipt Date: 20071005
  Transmission Date: 20080405
  Serious: Yes (Death)
  Sender: FDA-Public Use
  Company Number: US-JNJFOC-20071002012

PATIENT
  Age: 57 Year
  Sex: Female
  Weight: 86.18 kg

DRUGS (5)
  1. INVEGA [Suspect]
     Indication: SCHIZOAFFECTIVE DISORDER
     Route: 048
  2. PROPRANOLOL [Concomitant]
  3. EFFEXOR XR [Concomitant]
  4. ATIVAN [Concomitant]
  5. COGENTIN [Concomitant]
     Indication: MOVEMENT DISORDER

REACTIONS (1)
  - DEATH [None]
